FAERS Safety Report 8442839-1 (Version None)
Quarter: 2012Q2

REPORT INFORMATION
  Report Type: 
  Country: None (occurrence: None)
  Receive Date: 20120615
  Receipt Date: 20120607
  Transmission Date: 20120825
  Serious: Yes (Hospitalization, Other)
  Sender: FDA-Public Use
  Company Number: US-MILLENNIUM PHARMACEUTICALS, INC.-2012-04075

PATIENT
  Age: 14 Year
  Sex: Male
  Weight: 67.4 kg

DRUGS (5)
  1. ETOPOSIDE [Suspect]
     Indication: ACUTE MYELOID LEUKAEMIA
     Dosage: UNK
     Route: 042
     Dates: start: 20120514, end: 20120518
  2. VELCADE [Suspect]
     Indication: ACUTE MYELOID LEUKAEMIA
     Dosage: 1.3 MG/M2, CYCLIC
     Route: 040
     Dates: start: 20120514, end: 20120522
  3. CYTARABINE [Suspect]
     Indication: ACUTE MYELOID LEUKAEMIA
     Dosage: UNK
     Dates: start: 20120514, end: 20120524
  4. ABELCET [Suspect]
     Indication: PRODUCT USED FOR UNKNOWN INDICATION
  5. DAUNORUBICIN HYDROCHLORIDE [Suspect]
     Indication: ACUTE MYELOID LEUKAEMIA
     Dosage: UNK
     Route: 042
     Dates: start: 20120514, end: 20120518

REACTIONS (5)
  - BLOOD FIBRINOGEN DECREASED [None]
  - STOMATITIS [None]
  - HYPOKALAEMIA [None]
  - PROTHROMBIN TIME PROLONGED [None]
  - CAECITIS [None]
